FAERS Safety Report 8303399 (Version 2)
Quarter: 2012Q4

REPORT INFORMATION
  Report Type: Report from Study
  Country: PL (occurrence: PL)
  Receive Date: 20111220
  Receipt Date: 20121107
  Transmission Date: 20130627
  Serious: Yes (Life-Threatening, Hospitalization)
  Sender: FDA-Public Use
  Company Number: PL-NOVOPROD-341634

PATIENT
  Age: 60 Year
  Sex: Female
  Weight: 107 kg

DRUGS (1)
  1. LIRAGLUTIDE FLEXPEN [Suspect]
     Indication: TYPE 2 DIABETES MELLITUS
     Dosage: 1.8 mg, qd
     Route: 058
     Dates: start: 20110127

REACTIONS (1)
  - Coronary revascularisation [Recovered/Resolved]
